FAERS Safety Report 15552007 (Version 1)
Quarter: 2018Q4

REPORT INFORMATION
  Report Type: Report from Study
  Country: IT (occurrence: IT)
  Receive Date: 20181025
  Receipt Date: 20181025
  Transmission Date: 20190205
  Serious: Yes (Death)
  Sender: FDA-Public Use
  Company Number: IT-TEVA-2018-IT-968394

PATIENT
  Age: 82 Year
  Sex: Female

DRUGS (8)
  1. TORVAST 20 MG COMPRESSE MASTICABILI [Concomitant]
     Route: 065
  2. LASIX [Concomitant]
     Active Substance: FUROSEMIDE
     Route: 065
  3. SEROQUEL [Concomitant]
     Active Substance: QUETIAPINE FUMARATE
     Route: 065
  4. ELIQUIS [Concomitant]
     Active Substance: APIXABAN
     Route: 048
  5. DILATREND 6,25 MG COMPRESSE [Concomitant]
     Route: 065
  6. LUVION 100 MG CAPSULE RIGIDE [Concomitant]
  7. PANTOPRAZOLE [Concomitant]
     Active Substance: PANTOPRAZOLE
     Route: 065
  8. METFORMIN [Suspect]
     Active Substance: METFORMIN HYDROCHLORIDE
     Dosage: 1.5 GRAM DAILY;
     Route: 048

REACTIONS (3)
  - Acute kidney injury [Fatal]
  - Dyspnoea [Fatal]
  - Lactic acidosis [Fatal]

NARRATIVE: CASE EVENT DATE: 20180930
